FAERS Safety Report 4548070-4 (Version None)
Quarter: 2005Q1

REPORT INFORMATION
  Report Type: 
  Country: None (occurrence: None)
  Receive Date: 20050104
  Receipt Date: 20050104
  Transmission Date: 20050727
  Serious: Yes (Other)
  Sender: FDA-Public Use
  Company Number: None

PATIENT
  Age: 48 Year
  Sex: Female
  Weight: 44.4525 kg

DRUGS (1)
  1. PAXIL [Suspect]
     Indication: ANXIETY
     Dosage: ONE DOSE WED 8-21-02  ORAL , SECOND DOSE THURS 8-22-02 ORAL
     Route: 048
     Dates: start: 20020821, end: 20020822

REACTIONS (7)
  - AGITATION [None]
  - ANOREXIA [None]
  - BEDRIDDEN [None]
  - CRYING [None]
  - FEELING ABNORMAL [None]
  - PSYCHIATRIC SYMPTOM [None]
  - THINKING ABNORMAL [None]
